FAERS Safety Report 9458325 (Version 2)
Quarter: 2013Q4

REPORT INFORMATION
  Report Type: Spontaneous
  Country: US (occurrence: US)
  Receive Date: 20130814
  Receipt Date: 20131017
  Transmission Date: 20140711
  Serious: Yes (Death, Other)
  Sender: FDA-Public Use
  Company Number: US-ELI_LILLY_AND_COMPANY-US201308002445

PATIENT
  Age: 65 Year
  Sex: Male

DRUGS (2)
  1. INSULIN HUMAN [Suspect]
     Indication: DIABETES MELLITUS
     Route: 058
  2. HUMALOG LISPRO [Suspect]
     Indication: DIABETES MELLITUS
     Dosage: UNK, PRN

REACTIONS (4)
  - Coma [Fatal]
  - Hypoglycaemic encephalopathy [Fatal]
  - Hypoglycaemia [Fatal]
  - Incorrect dose administered [Unknown]
